FAERS Safety Report 6284155-2 (Version None)
Quarter: 2009Q3

REPORT INFORMATION
  Report Type: 
  Country: None (occurrence: None)
  Receive Date: 20090723
  Receipt Date: 20090707
  Transmission Date: 20100115
  Serious: Yes (Other)
  Sender: FDA-Public Use
  Company Number: 8048725

PATIENT
  Age: 38 Year
  Sex: Male
  Weight: 62.7 kg

DRUGS (3)
  1. XYZAL [Suspect]
     Indication: MULTIPLE ALLERGIES
     Dosage: 5 MG /D PO
     Route: 048
     Dates: start: 20090630, end: 20090630
  2. XYZAL [Suspect]
     Indication: MULTIPLE ALLERGIES
     Dosage: 2.5 MG /D PO
     Route: 048
     Dates: start: 20090703, end: 20090703
  3. LUNESTA [Concomitant]

REACTIONS (5)
  - ASTHENIA [None]
  - DEPRESSION [None]
  - FATIGUE [None]
  - LETHARGY [None]
  - SUICIDAL IDEATION [None]
